FAERS Safety Report 20328725 (Version 1)
Quarter: 2022Q1

REPORT INFORMATION
  Report Type: Report from Study
  Country: US (occurrence: US)
  Receive Date: 20220112
  Receipt Date: 20220112
  Transmission Date: 20220423
  Serious: Yes (Other)
  Sender: FDA-Public Use
  Company Number: US-BAXALTA-2016BLT006390AA

PATIENT
  Sex: Female
  Weight: 98 kg

DRUGS (11)
  1. HUMAN IMMUNOGLOBULIN G [Suspect]
     Active Substance: HUMAN IMMUNOGLOBULIN G
     Indication: Primary immunodeficiency syndrome
     Dosage: UNK, EVERY 4 WK
     Route: 042
  2. HUMAN IMMUNOGLOBULIN G [Suspect]
     Active Substance: HUMAN IMMUNOGLOBULIN G
     Dosage: 60 GRAM, Q4WEEKS
     Route: 042
  3. SPIRONOLACTONE [Concomitant]
     Active Substance: SPIRONOLACTONE
     Dosage: 25 MILLIGRAM, ONE SINGLE TAB/ NEXT TWO
     Route: 065
  4. CALCITRIOL [Concomitant]
     Active Substance: CALCITRIOL
     Dosage: 0.5 MICROGRAM, BID
     Route: 065
  5. FUROSEMIDE [Concomitant]
     Active Substance: FUROSEMIDE
     Dosage: 40 MILLIGRAM, ONE SINGLE TAB/NEXT DAY TWO
     Route: 065
  6. VITAMIN D [Concomitant]
     Active Substance: VITAMIN D NOS
     Dosage: 25 MILLIGRAM, ALTERNATE ONE OR TWO
     Route: 065
  7. VITAMIN D [Concomitant]
     Active Substance: VITAMIN D NOS
     Dosage: 50000 INTERNATIONAL UNIT
     Route: 065
  8. SYNTHROID [Concomitant]
     Active Substance: LEVOTHYROXINE SODIUM
     Dosage: 200 MICROGRAM, QD
     Route: 065
  9. MAGNESIUM [Concomitant]
     Active Substance: MAGNESIUM
  10. WARFARIN [Concomitant]
     Active Substance: WARFARIN
     Dosage: 5 MILLIGRAM
  11. NEURONTIN [Concomitant]
     Active Substance: GABAPENTIN
     Dosage: 200 MILLIGRAM, Q8HR
     Route: 065

REACTIONS (23)
  - Infection [Unknown]
  - Ear infection [Unknown]
  - Spinal disorder [Unknown]
  - Illness [Unknown]
  - Pyrexia [Unknown]
  - Body temperature decreased [Unknown]
  - Hot flush [Unknown]
  - Feeling cold [Unknown]
  - Malabsorption [Unknown]
  - Disease complication [Unknown]
  - Headache [Unknown]
  - Pain [Unknown]
  - Contusion [Unknown]
  - Blister [Unknown]
  - Body height decreased [Unknown]
  - Incorrect drug administration rate [Unknown]
  - Hypercoagulation [Unknown]
  - Unevaluable event [Unknown]
  - Blood immunoglobulin A decreased [Unknown]
  - Blood immunoglobulin A increased [Unknown]
  - Blood immunoglobulin G increased [Unknown]
  - Blood immunoglobulin G decreased [Unknown]
  - Antibody test abnormal [Unknown]
